FAERS Safety Report 5947839-9 (Version None)
Quarter: 2008Q4

REPORT INFORMATION
  Report Type: 
  Country: None (occurrence: None)
  Receive Date: 20081111
  Receipt Date: 20081107
  Transmission Date: 20090506
  Serious: Yes (Hospitalization)
  Sender: FDA-Public Use
  Company Number: GB-BRISTOL-MYERS SQUIBB COMPANY-14387534

PATIENT
  Age: 33 Year
  Sex: Male
  Weight: 78 kg

DRUGS (7)
  1. REYATAZ [Suspect]
     Indication: HIV INFECTION
     Route: 048
     Dates: start: 20080722
  2. TRUVADA [Suspect]
     Indication: HIV INFECTION
     Dates: start: 20080722
  3. RITONAVIR [Concomitant]
     Indication: HIV INFECTION
     Route: 048
     Dates: start: 20080722
  4. EMTRICITABINE [Concomitant]
     Indication: HIV INFECTION
     Dosage: 1 DOSAGE FORM=1 TABLET.
     Route: 048
     Dates: start: 20080722
  5. SENNA [Concomitant]
     Indication: CONSTIPATION
     Dosage: 2 DOSAGE FORM=2 TABLETS.
     Route: 048
     Dates: start: 20080819
  6. LACTULOSE [Concomitant]
     Indication: CONSTIPATION
     Route: 048
     Dates: start: 20080819
  7. MOVICOL [Concomitant]
     Indication: CONSTIPATION
     Route: 048
     Dates: start: 20080819

REACTIONS (2)
  - CONSTIPATION [None]
  - JAUNDICE [None]
